FAERS Safety Report 9329053 (Version 1)
Quarter: 2013Q2

REPORT INFORMATION
  Report Type: Spontaneous
  Country: US (occurrence: US)
  Receive Date: 20130604
  Receipt Date: 20130604
  Transmission Date: 20140414
  Serious: No
  Sender: FDA-Public Use
  Company Number: US-SANOFI-AVENTIS-2012SA072583

PATIENT
  Age: 60 Year
  Sex: Male

DRUGS (3)
  1. LANTUS SOLOSTAR [Suspect]
     Indication: TYPE 2 DIABETES MELLITUS
     Dosage: PRODUCT START DATE MENTIONED AS 2 YEARS AGO DOSE:40 UNIT(S)
     Route: 058
     Dates: start: 2010
  2. SOLOSTAR [Suspect]
     Indication: TYPE 2 DIABETES MELLITUS
     Dosage: PRODUCT START DATE MENTIONED AS 2 YEARS AGO
     Dates: start: 2010
  3. VICTOZA [Suspect]
     Indication: TYPE 2 DIABETES MELLITUS
     Dosage: 1.8 IN THE MORNING
     Route: 065
     Dates: start: 201203

REACTIONS (2)
  - Pollakiuria [Not Recovered/Not Resolved]
  - Diarrhoea [Recovered/Resolved]
